FAERS Safety Report 18997137 (Version 2)
Quarter: 2021Q2

REPORT INFORMATION
  Report Type: Spontaneous
  Country: US (occurrence: US)
  Receive Date: 20210311
  Receipt Date: 20210401
  Transmission Date: 20210717
  Serious: Yes (Other)
  Sender: FDA-Public Use
  Company Number: US-GLAXOSMITHKLINE-US2021GSK039603

PATIENT
  Sex: Female

DRUGS (7)
  1. ZANTAC [Suspect]
     Active Substance: RANITIDINE HYDROCHLORIDE
     Indication: IMPAIRED GASTRIC EMPTYING
     Dosage: 300 MG BOTH
     Route: 065
     Dates: start: 200901, end: 201901
  2. RANITIDINE. [Suspect]
     Active Substance: RANITIDINE
     Indication: IMPAIRED GASTRIC EMPTYING
     Dosage: 300 MG, QD
     Route: 065
     Dates: start: 200901, end: 201901
  3. RANITIDINE. [Suspect]
     Active Substance: RANITIDINE
     Indication: IMPAIRED GASTRIC EMPTYING
     Dosage: 300 MG, QD
     Route: 065
     Dates: start: 200901, end: 201901
  4. RANITIDINE CAPSULE [Suspect]
     Active Substance: RANITIDINE
     Indication: IMPAIRED GASTRIC EMPTYING
     Dosage: 300 MG BOTH
     Route: 065
     Dates: start: 200901, end: 201901
  5. ZANTAC [Suspect]
     Active Substance: RANITIDINE HYDROCHLORIDE
     Indication: IMPAIRED GASTRIC EMPTYING
     Dosage: 300 MG BOTH
     Route: 065
     Dates: start: 200901, end: 201901
  6. RANITIDINE. [Suspect]
     Active Substance: RANITIDINE
     Indication: IMPAIRED GASTRIC EMPTYING
     Dosage: 300 MG, QD
     Route: 065
     Dates: start: 200901, end: 201901
  7. ZANTAC [Suspect]
     Active Substance: RANITIDINE HYDROCHLORIDE
     Indication: IMPAIRED GASTRIC EMPTYING
     Dosage: 300 MG BOTH
     Route: 065
     Dates: start: 200901, end: 201901

REACTIONS (1)
  - Lung neoplasm malignant [Unknown]
